FAERS Safety Report 7638452-6 (Version None)
Quarter: 2011Q3

REPORT INFORMATION
  Report Type: 
  Country: None (occurrence: None)
  Receive Date: 20110727
  Receipt Date: 20110722
  Transmission Date: 20111222
  Serious: Yes (Hospitalization)
  Sender: FDA-Public Use
  Company Number: US-B.I. PHARMACEUTICALS,INC./RIDGEFIELD-2011-BP-12213BP

PATIENT
  Sex: Male

DRUGS (12)
  1. SIMVASTATIN [Concomitant]
     Indication: BLOOD CHOLESTEROL INCREASED
     Dosage: 5 MG
     Route: 048
  2. FERROUS SULFATE TAB [Concomitant]
     Dosage: 325 MG
     Route: 048
  3. OMEPRAZOLE [Concomitant]
     Indication: DYSPEPSIA
     Route: 048
  4. EPLERONONE [Concomitant]
     Dosage: 25 MG
     Route: 048
  5. VICODIN [Concomitant]
     Indication: ARTHRITIS
     Route: 048
  6. STOOL SOFTENER [Concomitant]
     Indication: CONSTIPATION
     Route: 048
  7. AMBIEN [Concomitant]
     Indication: INSOMNIA
     Route: 048
  8. PRADAXA [Suspect]
     Indication: ATRIAL FIBRILLATION
     Dosage: 150 MG
     Route: 048
     Dates: start: 20110404, end: 20110418
  9. NITROGLYCERIN [Concomitant]
     Indication: ANGINA PECTORIS
     Route: 060
  10. FUROSEMIDE [Concomitant]
     Indication: OEDEMA
     Dosage: 20 MG
     Route: 048
  11. CARVEDILOL [Concomitant]
     Indication: HYPERTENSION
     Dosage: 6.25 MG
     Route: 048
  12. DIGOXIN [Concomitant]
     Indication: HEART RATE IRREGULAR
     Dosage: 0.125 MG
     Route: 048

REACTIONS (2)
  - HAEMATEMESIS [None]
  - MALAISE [None]
